FAERS Safety Report 9896107 (Version 1)
Quarter: 2014Q1

REPORT INFORMATION
  Report Type: Spontaneous
  Country: US (occurrence: US)
  Receive Date: 20140213
  Receipt Date: 20140213
  Transmission Date: 20141002
  Serious: No
  Sender: FDA-Public Use
  Company Number: US-BRISTOL-MYERS SQUIBB COMPANY-19611805

PATIENT
  Age: 64 Year
  Sex: Female
  Weight: 95.24 kg

DRUGS (12)
  1. ABATACEPT SUBQ INJECTION 125MG/ML [Suspect]
     Route: 058
  2. FLEXERIL [Concomitant]
     Dosage: TABS
  3. ULTRAM [Concomitant]
     Dosage: TABS
  4. PREDNISONE [Concomitant]
     Dosage: TABS
  5. ZYRTEC [Concomitant]
     Dosage: TABS
  6. LISINOPRIL [Concomitant]
     Dosage: TABS
  7. FENOFIBRATE [Concomitant]
     Dosage: CAPS
  8. VITAMIN E [Concomitant]
     Dosage: 1 DF= 1000 UNITS ?CAPS
  9. LEVOTHYROXINE [Concomitant]
     Dosage: TABS
  10. CLARITIN [Concomitant]
     Dosage: TABS
  11. VITAMIN D [Concomitant]
     Dosage: 1 DF=2000 UNITS?CAPS
  12. ASPIRIN [Concomitant]
     Dosage: TABS EC

REACTIONS (5)
  - Headache [Unknown]
  - Fatigue [Unknown]
  - Drug ineffective [Unknown]
  - Fall [Unknown]
  - Joint injury [Unknown]
